FAERS Safety Report 6882865-7 (Version None)
Quarter: 2010Q3

REPORT INFORMATION
  Report Type: 
  Country: None (occurrence: None)
  Receive Date: 20100702
  Receipt Date: 20090611
  Transmission Date: 20110219
  Serious: Yes (Other)
  Sender: FDA-Public Use
  Company Number: 2009228921

PATIENT
  Age: 27 Day
  Sex: Male

DRUGS (1)
  1. ZOLOFT [Suspect]
     Indication: OBSESSIVE-COMPULSIVE DISORDER
     Dosage: 50 MG, 1X/DAY, TRANSMAMMARY
     Route: 063
     Dates: start: 20080930

REACTIONS (2)
  - DRUG EXPOSURE VIA BREAST MILK [None]
  - HYPERTONIA [None]
